FAERS Safety Report 22310190 (Version 1)
Quarter: 2023Q2

REPORT INFORMATION
  Report Type: Spontaneous
  Country: CA (occurrence: CA)
  Receive Date: 20230511
  Receipt Date: 20230511
  Transmission Date: 20230721
  Serious: Yes (Hospitalization)
  Sender: FDA-Public Use
  Company Number: CA-TEVA-2023-CA-2885353

PATIENT
  Age: 14 Year
  Sex: Female
  Weight: 61 kg

DRUGS (2)
  1. ACETAMINOPHEN [Suspect]
     Active Substance: ACETAMINOPHEN
     Indication: Headache
     Route: 048
  2. IBUPROFEN [Suspect]
     Active Substance: IBUPROFEN
     Indication: Headache
     Route: 048

REACTIONS (5)
  - Depressive symptom [Recovered/Resolved]
  - Dizziness [Recovered/Resolved]
  - Headache [Recovered/Resolved]
  - Hypersomnia [Recovered/Resolved]
  - Nausea [Recovered/Resolved]
